FAERS Safety Report 10222287 (Version 1)
Quarter: 2014Q2

REPORT INFORMATION
  Report Type: Spontaneous
  Country: GB (occurrence: GB)
  Receive Date: 20140606
  Receipt Date: 20140606
  Transmission Date: 20141212
  Serious: Yes (Other)
  Sender: FDA-Public Use
  Company Number: GB-GLAXOSMITHKLINE-B1001199A

PATIENT
  Age: 19 Year
  Sex: Female

DRUGS (7)
  1. RANITIDINE [Suspect]
     Indication: PRODUCT USED FOR UNKNOWN INDICATION
     Route: 065
  2. PENICILLIN G [Suspect]
     Indication: PRODUCT USED FOR UNKNOWN INDICATION
     Route: 042
  3. ENTONOX [Suspect]
     Indication: PAIN
     Route: 065
  4. PARACETAMOL [Suspect]
     Indication: PRODUCT USED FOR UNKNOWN INDICATION
     Route: 065
  5. PIRITON [Suspect]
     Indication: PRODUCT USED FOR UNKNOWN INDICATION
     Route: 042
  6. LEVOBUPIVACAINE [Suspect]
     Indication: EPIDURAL ANALGESIA
     Route: 065
  7. NITROUS OXIDE [Suspect]
     Indication: PRODUCT USED FOR UNKNOWN INDICATION
     Route: 065

REACTIONS (4)
  - Angioedema [Recovering/Resolving]
  - Enlarged uvula [Unknown]
  - Live birth [Unknown]
  - Exposure during pregnancy [Unknown]
